FAERS Safety Report 21180051 (Version 1)
Quarter: 2022Q3

REPORT INFORMATION
  Report Type: Spontaneous
  Country: US (occurrence: None)
  Receive Date: 20220805
  Receipt Date: 20220805
  Transmission Date: 20221026
  Serious: No
  Sender: FDA-Public Use
  Company Number: None

PATIENT
  Age: 62 Year
  Sex: Male
  Weight: 93.44 kg

DRUGS (1)
  1. EMPAGLIFLOZIN [Suspect]
     Active Substance: EMPAGLIFLOZIN
     Indication: Diabetes mellitus
     Dosage: 12.5 MG EVERY DAY PO
     Route: 048
     Dates: start: 20220114, end: 20220310

REACTIONS (2)
  - Vision blurred [None]
  - Diarrhoea [None]

NARRATIVE: CASE EVENT DATE: 20220305
